FAERS Safety Report 7659654-9 (Version None)
Quarter: 2011Q3

REPORT INFORMATION
  Report Type: 
  Country: None (occurrence: None)
  Receive Date: 20110805
  Receipt Date: 20110720
  Transmission Date: 20111222
  Serious: Yes (Other)
  Sender: FDA-Public Use
  Company Number: CH-ASTRAZENECA-2011SE44030

PATIENT
  Age: 40 Year
  Sex: Male

DRUGS (13)
  1. TESTOSTERONE [Suspect]
     Dates: start: 20110328, end: 20110515
  2. TRENBOLONE [Suspect]
     Dates: start: 20110328, end: 20110515
  3. TESTOSTERONE PHENYL PROPIONATE INJ [Suspect]
     Dates: start: 20110110, end: 20110215
  4. SOMATROPIN RDNA [Suspect]
     Dates: start: 20110131, end: 20110321
  5. SOMATROPIN RDNA [Suspect]
     Dates: start: 20110322, end: 20110515
  6. PRIMOBOLAN [Suspect]
     Dates: start: 20110214, end: 20110328
  7. TESTOSTERONE CYPIONATE [Suspect]
     Dates: start: 20110214, end: 20110328
  8. OXANDROLONE [Suspect]
     Dates: start: 20110404, end: 20110522
  9. WINSTROL [Suspect]
     Dates: start: 20110404, end: 20110522
  10. BOLDENON [Suspect]
     Dates: start: 20110110, end: 20110215
  11. ARIMIDEX [Suspect]
     Route: 048
     Dates: start: 20110110, end: 20110515
  12. CLENBUTEROL [Suspect]
     Dosage: 2 TO 6 DF DAILY
     Route: 048
     Dates: start: 20110131, end: 20110214
  13. PROVIRON [Suspect]
     Dates: start: 20110404, end: 20110522

REACTIONS (8)
  - SNORING [None]
  - AZOTAEMIA [None]
  - RHABDOMYOLYSIS [None]
  - LIVER INJURY [None]
  - HYPERCHOLESTEROLAEMIA [None]
  - DYSPHONIA [None]
  - ACROMEGALY [None]
  - MUSCLE HYPERTROPHY [None]
